FAERS Safety Report 19017947 (Version 1)
Quarter: 2021Q1

REPORT INFORMATION
  Report Type: Spontaneous
  Country: FI (occurrence: FI)
  Receive Date: 20210317
  Receipt Date: 20210317
  Transmission Date: 20210420
  Serious: Yes (Death, Other)
  Sender: FDA-Public Use
  Company Number: FI-AMGEN-FINSP2021040181

PATIENT

DRUGS (2)
  1. PEGFILGRASTIM [Suspect]
     Active Substance: PEGFILGRASTIM
     Indication: HAEMATOPOIETIC STEM CELL MOBILISATION
     Dosage: 6 MILLIGRAM
     Route: 058
  2. FILGRASTIM [Suspect]
     Active Substance: FILGRASTIM
     Indication: HAEMATOPOIETIC STEM CELL MOBILISATION
     Dosage: 5 MICROGRAM/KILOGRAM, QD
     Route: 058

REACTIONS (16)
  - Death [Fatal]
  - Febrile neutropenia [Unknown]
  - Septic shock [Fatal]
  - Peripheral T-cell lymphoma unspecified [Unknown]
  - Bacteraemia [Unknown]
  - Infection [Unknown]
  - Non-Hodgkin^s lymphoma recurrent [Fatal]
  - B-cell lymphoma recurrent [Unknown]
  - H1N1 influenza [Fatal]
  - Acute respiratory distress syndrome [Fatal]
  - Diffuse large B-cell lymphoma recurrent [Unknown]
  - Herpes zoster [Unknown]
  - Cerebral haemorrhage [Fatal]
  - Post procedural haemorrhage [Fatal]
  - Mantle cell lymphoma recurrent [Unknown]
  - Off label use [Unknown]
